FAERS Safety Report 10386513 (Version 2)
Quarter: 2014Q3

REPORT INFORMATION
  Report Type: Spontaneous
  Country: US (occurrence: US)
  Receive Date: 20140815
  Receipt Date: 20140909
  Transmission Date: 20150326
  Serious: Yes (Other)
  Sender: FDA-Public Use
  Company Number: US-SHIRE-US201404960

PATIENT
  Age: 4 Year
  Sex: Male
  Weight: 15.19 kg

DRUGS (2)
  1. MELATONIN [Concomitant]
     Active Substance: MELATONIN
     Indication: INSOMNIA
     Dosage: 5 MG, 1X/DAY:QD (HS)
     Route: 065
  2. ADDERALL XR [Suspect]
     Active Substance: AMPHETAMINE ASPARTATE\AMPHETAMINE SULFATE\DEXTROAMPHETAMINE SACCHARATE\DEXTROAMPHETAMINE SULFATE
     Indication: ATTENTION DEFICIT/HYPERACTIVITY DISORDER
     Dosage: 5 MG, 1X/DAY:QD
     Route: 048
     Dates: start: 20140430, end: 20140514

REACTIONS (3)
  - Hallucinations, mixed [Recovered/Resolved]
  - Off label use [Recovered/Resolved]
  - Formication [Recovered/Resolved]

NARRATIVE: CASE EVENT DATE: 20140430
